FAERS Safety Report 13667321 (Version 1)
Quarter: 2017Q2

REPORT INFORMATION
  Report Type: Spontaneous
  Country: JP (occurrence: JP)
  Receive Date: 20170620
  Receipt Date: 20170620
  Transmission Date: 20170830
  Serious: Yes (Life-Threatening, Hospitalization)
  Sender: FDA-Public Use
  Company Number: PHHY2017JP084976

PATIENT
  Age: 27 Year
  Sex: Female

DRUGS (1)
  1. OLANZAPINE. [Suspect]
     Active Substance: OLANZAPINE
     Indication: PANIC DISORDER
     Dosage: 20 MG, QD
     Route: 065

REACTIONS (10)
  - Tachycardia [Unknown]
  - Body temperature increased [Recovered/Resolved]
  - Blood creatine phosphokinase increased [Recovered/Resolved]
  - White blood cell count increased [Unknown]
  - Encephalopathy [Unknown]
  - Hyperglycaemic hyperosmolar nonketotic syndrome [Recovered/Resolved]
  - Thirst [Unknown]
  - Neuroleptic malignant syndrome [Unknown]
  - Hypertension [Unknown]
  - Altered state of consciousness [Recovered/Resolved]
